FAERS Safety Report 9960857 (Version 1)
Quarter: 2014Q1

REPORT INFORMATION
  Report Type: Spontaneous
  Country: US (occurrence: None)
  Receive Date: 20140228
  Receipt Date: 20140228
  Transmission Date: 20141002
  Serious: Yes (Hospitalization)
  Sender: FDA-Public Use
  Company Number: 152716

PATIENT
  Age: 35 Year
  Sex: Male

DRUGS (2)
  1. CISPLATIN INJ. 50MG/50ML -BEDFORD LABS, INC [Suspect]
     Indication: CHEMOTHERAPY
  2. BLEOMYCIN [Suspect]

REACTIONS (3)
  - Acute generalised exanthematous pustulosis [None]
  - Herpes dermatitis [None]
  - Bacterial test positive [None]
